FAERS Safety Report 6215505-0 (Version None)
Quarter: 2009Q2

REPORT INFORMATION
  Report Type: 
  Country: None (occurrence: None)
  Receive Date: 20090603
  Receipt Date: 20090520
  Transmission Date: 20091009
  Serious: Yes (Life-Threatening, Other)
  Sender: FDA-Public Use
  Company Number: VAL_00267_2009

PATIENT

DRUGS (1)
  1. CARBAMAZEPINE [Suspect]
     Indication: DRUG USE FOR UNKNOWN INDICATION
     Dosage: (DF)

REACTIONS (13)
  - CHEST PAIN [None]
  - DRUG RASH WITH EOSINOPHILIA AND SYSTEMIC SYMPTOMS [None]
  - HEPATITIS FULMINANT [None]
  - HEPATOTOXICITY [None]
  - LEUKOCYTOCLASTIC VASCULITIS [None]
  - LICHENOID KERATOSIS [None]
  - MYOCARDITIS [None]
  - PANCREATITIS [None]
  - PNEUMONITIS [None]
  - PSEUDOLYMPHOMA [None]
  - RENAL IMPAIRMENT [None]
  - STAPHYLOCOCCAL BACTERAEMIA [None]
  - TYPE 1 DIABETES MELLITUS [None]
